FAERS Safety Report 24680825 (Version 2)
Quarter: 2025Q3

REPORT INFORMATION
  Report Type: Report from Study
  Country: EU (occurrence: EU)
  Receive Date: 20241129
  Receipt Date: 20250802
  Transmission Date: 20251020
  Serious: Yes (Other)
  Sender: ALEXION PHARMACEUTICALS
  Company Number: EU-AstraZeneca-CH-00748164A

PATIENT
  Age: 43 Year
  Sex: Female

DRUGS (1)
  1. OSIMERTINIB [Suspect]
     Active Substance: OSIMERTINIB
     Indication: Non-small cell lung cancer
     Dosage: 80 MILLIGRAM, QD
     Dates: start: 202311

REACTIONS (4)
  - Basal cell carcinoma [Unknown]
  - Diarrhoea [Unknown]
  - Skin fragility [Unknown]
  - Coagulopathy [Unknown]
